FAERS Safety Report 9506712 (Version 2)
Quarter: 2014Q1

REPORT INFORMATION
  Report Type: Spontaneous
  Country: US (occurrence: None)
  Receive Date: 20130305
  Receipt Date: 20140306
  Transmission Date: 20141002
  Serious: Yes (Hospitalization, Other)
  Sender: FDA-Public Use
  Company Number: 163-21880-12111284

PATIENT
  Age: 74 Year
  Sex: Male

DRUGS (8)
  1. REVLIMID [Suspect]
     Indication: PLASMA CELL MYELOMA
     Dosage: 20 MG, 21 IN 21 D, PO
     Route: 048
     Dates: start: 20120920
  2. BETA-BLOCKER (BETA BLOCKING AGENTS) [Suspect]
     Indication: PRODUCT USED FOR UNKNOWN INDICATION
  3. PANTOPRAZOLE [Concomitant]
  4. DEXAMETHASONE [Concomitant]
  5. PANTOPRAZOLE [Concomitant]
  6. PROTONIX [Concomitant]
  7. OXYCODONE [Concomitant]
  8. ASPIRIN (ACETYLSALICYLIC ACID) [Concomitant]

REACTIONS (4)
  - Pulmonary embolism [None]
  - Orthostatic hypotension [None]
  - Syncope [None]
  - Bradycardia [None]
